FAERS Safety Report 12089273 (Version 1)
Quarter: 2016Q1

REPORT INFORMATION
  Report Type: Spontaneous
  Country: US (occurrence: US)
  Receive Date: 20160218
  Receipt Date: 20160218
  Transmission Date: 20160526
  Serious: No
  Sender: FDA-Public Use
  Company Number: US-PERRIGO-15US012380

PATIENT
  Age: 37 Year
  Sex: Female
  Weight: 86.17 kg

DRUGS (3)
  1. CETIRIZINE HYDROCHLORIDE. [Suspect]
     Active Substance: CETIRIZINE HYDROCHLORIDE
     Indication: PERIORBITAL OEDEMA
     Dosage: 10 MG, QD
     Route: 048
     Dates: start: 201504
  2. CETIRIZINE HYDROCHLORIDE. [Suspect]
     Active Substance: CETIRIZINE HYDROCHLORIDE
     Indication: ASTHMA
  3. CETIRIZINE HYDROCHLORIDE. [Suspect]
     Active Substance: CETIRIZINE HYDROCHLORIDE
     Indication: PERENNIAL ALLERGY
     Dosage: 10 MG, QD
     Route: 048
     Dates: end: 201504

REACTIONS (3)
  - No adverse event [Recovered/Resolved]
  - Exposure during breast feeding [Unknown]
  - Off label use [Unknown]

NARRATIVE: CASE EVENT DATE: 20150525
